FAERS Safety Report 8113947-X (Version None)
Quarter: 2012Q1

REPORT INFORMATION
  Report Type: 
  Country: None (occurrence: None)
  Receive Date: 20120203
  Receipt Date: 20120202
  Transmission Date: 20120608
  Serious: Yes (Other)
  Sender: FDA-Public Use
  Company Number: GB-PFIZER INC-2011299823

PATIENT
  Age: 61 Year
  Sex: Male
  Weight: 65 kg

DRUGS (3)
  1. LYRICA [Suspect]
     Indication: INTERVERTEBRAL DISC PROTRUSION
  2. LYRICA [Suspect]
     Indication: URINARY TRACT PAIN
  3. LYRICA [Suspect]
     Indication: BACK PAIN
     Dosage: 150 MG, 2X/DAY
     Route: 048
     Dates: start: 20110401, end: 20111101

REACTIONS (4)
  - DRUG DEPENDENCE [None]
  - AGITATION [None]
  - WITHDRAWAL SYNDROME [None]
  - DEPRESSION [None]
